FAERS Safety Report 5411365-6 (Version None)
Quarter: 2007Q3

REPORT INFORMATION
  Report Type: 
  Country: None (occurrence: None)
  Receive Date: 20070810
  Receipt Date: 20070809
  Transmission Date: 20080115
  Serious: Yes (Death)
  Sender: FDA-Public Use
  Company Number: US-ASTRAZENECA-2007UW19332

PATIENT
  Age: 32 Year
  Sex: Male

DRUGS (3)
  1. SEROQUEL [Suspect]
     Route: 048
  2. VICODIN [Concomitant]
     Indication: PAIN
  3. FLEXERIL [Concomitant]
     Indication: PAIN

REACTIONS (1)
  - DEATH [None]
